FAERS Safety Report 7504492-0 (Version None)
Quarter: 2011Q2

REPORT INFORMATION
  Report Type: 
  Country: None (occurrence: None)
  Receive Date: 20110525
  Receipt Date: 20110518
  Transmission Date: 20111010
  Serious: Yes (Other)
  Sender: FDA-Public Use
  Company Number: US-BRISTOL-MYERS SQUIBB COMPANY-15759814

PATIENT
  Age: 66 Year
  Sex: Male
  Weight: 99 kg

DRUGS (2)
  1. CARBOPLATIN [Suspect]
     Indication: NON-SMALL CELL LUNG CANCER
     Dosage: 1 OF 3 WEEK CYCLE RECENT THERAPY ON 12JAN2011 AND 02FEB2011
     Route: 042
     Dates: start: 20101222
  2. ALIMTA [Suspect]
     Indication: NON-SMALL CELL LUNG CANCER
     Dosage: 1 OF 3 WEEK CYCLE RECENT THERAPY ON 12JAN2011 AND 02FEB2011
     Route: 042
     Dates: start: 20101222

REACTIONS (1)
  - MEDICATION ERROR [None]
